FAERS Safety Report 8195726-0 (Version None)
Quarter: 2012Q1

REPORT INFORMATION
  Report Type: 
  Country: None (occurrence: None)
  Receive Date: 20120308
  Receipt Date: 20120229
  Transmission Date: 20120608
  Serious: Yes (Other)
  Sender: FDA-Public Use
  Company Number: US-PFIZER INC-2012055230

PATIENT
  Sex: Female

DRUGS (13)
  1. METFORMIN HCL [Suspect]
     Dosage: 1000 MG, 1X/DAY
     Route: 048
     Dates: start: 20120216
  2. LISINOPRIL [Concomitant]
     Dosage: 5 MG, DAILY
     Route: 048
     Dates: start: 20110527, end: 20111122
  3. GLIMEPIRIDE [Concomitant]
     Dosage: 4 MG, 2X/DAY
     Route: 048
     Dates: start: 20110527, end: 20120215
  4. LISINOPRIL [Concomitant]
     Dosage: 5 MG, DAILY
     Route: 048
     Dates: start: 20120215, end: 20120216
  5. LOPID [Suspect]
     Dosage: 600 MG, 2X/DAY
     Route: 048
     Dates: start: 20120215, end: 20120216
  6. LANTUS [Concomitant]
     Dosage: 30 IU, DAILY
     Route: 058
     Dates: start: 20100528, end: 20110601
  7. METFORMIN HCL [Suspect]
     Dosage: 2500 MG, DAILY
     Route: 048
     Dates: start: 20110527, end: 20120215
  8. LANTUS [Concomitant]
     Dosage: 41 IU, DAILY
     Route: 058
     Dates: start: 20110602, end: 20110830
  9. LANTUS [Concomitant]
     Dosage: UNK
     Route: 058
     Dates: end: 20120215
  10. GLIMEPIRIDE [Concomitant]
     Dosage: 4 MG, 2X/DAY
     Route: 048
     Dates: start: 20100528
  11. LANTUS [Concomitant]
     Dosage: 41 IU, DAILY
     Route: 058
     Dates: start: 20120216
  12. CYCLOBENZAPRINE [Concomitant]
     Dosage: 10 MG, 3X/DAY, 1 TABLET
     Route: 048
     Dates: start: 20110527, end: 20110623
  13. LOVASTATIN [Concomitant]
     Dosage: 10 MG, DAILY
     Route: 048
     Dates: start: 20110107, end: 20110705

REACTIONS (2)
  - DIARRHOEA [None]
  - DIABETES MELLITUS INADEQUATE CONTROL [None]
